FAERS Safety Report 5886888-6 (Version None)
Quarter: 2008Q3

REPORT INFORMATION
  Report Type: 
  Country: None (occurrence: None)
  Receive Date: 20080917
  Receipt Date: 20080902
  Transmission Date: 20090109
  Serious: Yes (Hospitalization, Other)
  Sender: FDA-Public Use
  Company Number: US-GENENTECH-267897

PATIENT
  Sex: Male

DRUGS (3)
  1. BEVACIZUMAB [Suspect]
     Indication: METASTATIC MALIGNANT MELANOMA
     Dosage: 15 MG/KG, Q14D
     Route: 042
     Dates: start: 20080618
  2. INTRON A [Suspect]
     Indication: METASTATIC MALIGNANT MELANOMA
     Dosage: 5 MIU/M2, UNK
     Route: 058
     Dates: start: 20080618
  3. INTRON A [Suspect]
     Dosage: 10 MIU/M2, UNK
     Route: 058

REACTIONS (5)
  - ATAXIA [None]
  - CONFUSIONAL STATE [None]
  - DISEASE PROGRESSION [None]
  - MUSCULAR WEAKNESS [None]
  - NUCLEAR MAGNETIC RESONANCE IMAGING BRAIN ABNORMAL [None]
